FAERS Safety Report 21128421 (Version 1)
Quarter: 2022Q3

REPORT INFORMATION
  Report Type: Spontaneous
  Country: US (occurrence: None)
  Receive Date: 20220725
  Receipt Date: 20220725
  Transmission Date: 20221027
  Serious: Yes (Hospitalization)
  Sender: FDA-Public Use
  Company Number: None

PATIENT
  Sex: Female

DRUGS (1)
  1. MAVENCLAD [Suspect]
     Active Substance: CLADRIBINE
     Indication: Multiple sclerosis
     Dosage: OTHER FREQUENCY : DAYS 1,2,3,4,5 ;?10MG TABLET- TAKE 2 TABLETS ON DAYS 1 AND 2, AND 1 TABLET ON DAYS
     Route: 048
     Dates: start: 20220526

REACTIONS (1)
  - Gastrointestinal infection [None]
